FAERS Safety Report 9066263 (Version 2)
Quarter: 2013Q1

REPORT INFORMATION
  Report Type: Spontaneous
  Country: US (occurrence: US)
  Receive Date: 20130214
  Receipt Date: 20130221
  Transmission Date: 20140127
  Serious: No
  Sender: FDA-Public Use
  Company Number: US-BAYER-2013-016332

PATIENT
  Sex: Female

DRUGS (2)
  1. MIRENA [Suspect]
     Indication: PELVIC PAIN
     Dosage: 20 MCG/24HR, CONT
     Route: 015
  2. MIRENA [Suspect]
     Indication: ENDOMETRIOSIS

REACTIONS (2)
  - Device difficult to use [None]
  - Procedural pain [None]
